FAERS Safety Report 9395362 (Version 2)
Quarter: 2013Q4

REPORT INFORMATION
  Report Type: Spontaneous
  Country: BR (occurrence: BR)
  Receive Date: 20130711
  Receipt Date: 20131211
  Transmission Date: 20140711
  Serious: Yes (Other)
  Sender: FDA-Public Use
  Company Number: BR-SANOFI-AVENTIS-2013SA068517

PATIENT
  Sex: Male

DRUGS (2)
  1. CLEXANE [Suspect]
     Indication: ANTICOAGULANT THERAPY
     Route: 064
     Dates: start: 20130525, end: 201307
  2. CLEXANE [Suspect]
     Indication: ANTICOAGULANT THERAPY
     Route: 064
     Dates: start: 201307, end: 201310

REACTIONS (3)
  - Foetal growth restriction [Unknown]
  - Foetal exposure during pregnancy [Unknown]
  - Premature separation of placenta [Unknown]
